FAERS Safety Report 16695972 (Version 1)
Quarter: 2019Q3

REPORT INFORMATION
  Report Type: Spontaneous
  Country: CA (occurrence: CA)
  Receive Date: 20190813
  Receipt Date: 20190813
  Transmission Date: 20191004
  Serious: Yes (Other)
  Sender: FDA-Public Use
  Company Number: CA-AUROBINDO-AUR-APL-2019-046180

PATIENT

DRUGS (2)
  1. TELMISARTAN TABLETS [Suspect]
     Active Substance: TELMISARTAN
     Indication: HYPERTENSION
     Dosage: 40.0 MILLIGRAM, DAILY
     Route: 048
  2. TELMISARTAN TABLETS [Suspect]
     Active Substance: TELMISARTAN
     Indication: ANGINA PECTORIS
     Dosage: 40.0 MILLIGRAM, DAILY
     Route: 048

REACTIONS (2)
  - Pruritus [Recovered/Resolved]
  - Hypersensitivity [Recovered/Resolved]
